FAERS Safety Report 6746473-0 (Version None)
Quarter: 2010Q2

REPORT INFORMATION
  Report Type: 
  Country: None (occurrence: None)
  Receive Date: 20100528
  Receipt Date: 20091228
  Transmission Date: 20101027
  Serious: No
  Sender: FDA-Public Use
  Company Number: US-ASTRAZENECA-2010SE01108

PATIENT
  Age: 66 Year
  Sex: Female

DRUGS (3)
  1. PRILOSEC OTC [Suspect]
     Dosage: 1 TABLET, 1 /DAY FOR 3 DAYS
     Route: 048
     Dates: start: 20091127, end: 20091227
  2. ANTIBIOTIC                         /00011701/ [Concomitant]
     Dosage: UNKNOWN
  3. ALLERGY MEDICATION [Concomitant]
     Dosage: UNKNOWN

REACTIONS (3)
  - FAECES DISCOLOURED [None]
  - GASTROINTESTINAL PAIN [None]
  - HAEMATOCHEZIA [None]
